FAERS Safety Report 4792446-7 (Version None)
Quarter: 2005Q4

REPORT INFORMATION
  Report Type: 
  Country: None (occurrence: None)
  Receive Date: 20051010
  Receipt Date: 20051003
  Transmission Date: 20060501
  Serious: Yes (Other)
  Sender: FDA-Public Use
  Company Number: PHBS2005NO14635

PATIENT
  Age: 17 Year
  Sex: Female

DRUGS (1)
  1. RITALIN [Suspect]
     Route: 065

REACTIONS (2)
  - ANGER [None]
  - SUICIDAL IDEATION [None]
